FAERS Safety Report 10557109 (Version 1)
Quarter: 2014Q4

REPORT INFORMATION
  Report Type: Spontaneous
  Country: US (occurrence: US)
  Receive Date: 20141031
  Receipt Date: 20141031
  Transmission Date: 20150529
  Serious: No
  Sender: FDA-Public Use
  Company Number: US-PFIZER INC-2014296846

PATIENT
  Sex: Female

DRUGS (1)
  1. ADVIL [Suspect]
     Active Substance: IBUPROFEN
     Dosage: UNK

REACTIONS (6)
  - Pruritus [Unknown]
  - Dizziness [Unknown]
  - Fall [Unknown]
  - Dyspnoea [Unknown]
  - Dysphagia [Unknown]
  - Throat tightness [Unknown]

NARRATIVE: CASE EVENT DATE: 2011
